FAERS Safety Report 4957177-9 (Version None)
Quarter: 2006Q1

REPORT INFORMATION
  Report Type: 
  Country: None (occurrence: None)
  Receive Date: 20060323
  Receipt Date: 20060314
  Transmission Date: 20060701
  Serious: Yes (Other)
  Sender: FDA-Public Use
  Company Number: US016480

PATIENT
  Age: 56 Year
  Sex: Male
  Weight: 90.7194 kg

DRUGS (2)
  1. PROVIGIL [Suspect]
     Indication: FATIGUE
     Dosage: 200 MG QD ORAL
     Route: 048
     Dates: start: 20040601, end: 20050701
  2. PROVIGIL [Suspect]
     Indication: SLEEP APNOEA SYNDROME
     Dosage: 200 MG QD ORAL
     Route: 048
     Dates: start: 20040601, end: 20050701

REACTIONS (1)
  - TARDIVE DYSKINESIA [None]
